FAERS Safety Report 5952598-X (Version None)
Quarter: 2008Q4

REPORT INFORMATION
  Report Type: 
  Country: None (occurrence: None)
  Receive Date: 20081031
  Receipt Date: 20071112
  Transmission Date: 20090506
  Serious: Yes (Hospitalization)
  Sender: FDA-Public Use
  Company Number: US021692

PATIENT
  Age: 45 Year
  Sex: Female

DRUGS (1)
  1. PROVIGIL [Suspect]
     Dosage: 100 MG QD ORAL
     Route: 048
     Dates: start: 20071109

REACTIONS (2)
  - CHEST PAIN [None]
  - PALPITATIONS [None]
